FAERS Safety Report 16839899 (Version 1)
Quarter: 2019Q4

REPORT INFORMATION
  Report Type: Spontaneous
  Country: US (occurrence: US)
  Receive Date: 20190922
  Receipt Date: 20190922
  Transmission Date: 20200122
  Serious: Yes (Other)
  Sender: FDA-Public Use
  Company Number: None

PATIENT
  Age: 8 Year
  Sex: Male
  Weight: 20.8 kg

DRUGS (3)
  1. EPIDIOLEX [Suspect]
     Active Substance: CANNABIDIOL
     Indication: LENNOX-GASTAUT SYNDROME
     Route: 048
     Dates: start: 20190129
  2. CLOBAZAM. [Concomitant]
     Active Substance: CLOBAZAM
  3. VALPROIC ACID. [Concomitant]
     Active Substance: VALPROIC ACID
     Dates: end: 20190915

REACTIONS (5)
  - Platelet count decreased [None]
  - Alanine aminotransferase increased [None]
  - Somnolence [None]
  - Aspartate aminotransferase increased [None]
  - Ammonia increased [None]

NARRATIVE: CASE EVENT DATE: 20190904
